FAERS Safety Report 16023359 (Version 1)
Quarter: 2019Q1

REPORT INFORMATION
  Report Type: Spontaneous
  Country: JP (occurrence: JP)
  Receive Date: 20190301
  Receipt Date: 20190301
  Transmission Date: 20190418
  Serious: Yes (Death)
  Sender: FDA-Public Use
  Company Number: JP-PFIZER INC-2019087510

PATIENT
  Age: 58 Year
  Sex: Male

DRUGS (2)
  1. MEROPEN [MEROPENEM] [Concomitant]
     Indication: INFECTION
     Dosage: UNK
  2. VFEND [Suspect]
     Active Substance: VORICONAZOLE
     Indication: FUNGAL INFECTION
     Dosage: UNK
     Route: 041

REACTIONS (1)
  - Death [Fatal]
